FAERS Safety Report 5917163-9 (Version None)
Quarter: 2008Q4

REPORT INFORMATION
  Report Type: 
  Country: None (occurrence: None)
  Receive Date: 20081014
  Receipt Date: 20081006
  Transmission Date: 20090506
  Serious: Yes (Hospitalization, Other)
  Sender: FDA-Public Use
  Company Number: US-ROCHE-549223

PATIENT
  Sex: Male
  Weight: 61.2 kg

DRUGS (1)
  1. ACCUTANE [Suspect]
     Indication: ACNE
     Route: 065
     Dates: start: 20030106, end: 20030407

REACTIONS (8)
  - ABDOMINAL PAIN [None]
  - APPENDICITIS [None]
  - DEPRESSION [None]
  - GASTROINTESTINAL DISORDER [None]
  - HYDROCELE [None]
  - INFLAMMATORY BOWEL DISEASE [None]
  - RECTAL HAEMORRHAGE [None]
  - SMALL INTESTINAL OBSTRUCTION [None]
